FAERS Safety Report 8265645-X (Version None)
Quarter: 2012Q2

REPORT INFORMATION
  Report Type: 
  Country: None (occurrence: None)
  Receive Date: 20120406
  Receipt Date: 20120403
  Transmission Date: 20120825
  Serious: Yes (Hospitalization, Other)
  Sender: FDA-Public Use
  Company Number: DE-ACTELION-A-US2009-24453

PATIENT

DRUGS (11)
  1. SILDENAFIL [Concomitant]
  2. VENTAVIS [Suspect]
     Indication: PULMONARY ARTERIAL HYPERTENSION
     Dosage: 2.5 G, Q4HRS
     Route: 055
     Dates: start: 20081216, end: 20081226
  3. TORSEMIDE [Concomitant]
  4. OXYGEN [Concomitant]
  5. ENOXAPARIN SODIUM [Concomitant]
  6. MARCUMAR [Concomitant]
  7. LEVOTHYROXINE SODIUM [Concomitant]
  8. PANTOPRAZOLE [Concomitant]
  9. LASIX [Concomitant]
  10. SITAXSENTAN [Concomitant]
  11. SPIRONOLACTONE [Concomitant]

REACTIONS (8)
  - HYPOTENSION [None]
  - ATRIAL FIBRILLATION [None]
  - CARDIAC FAILURE [None]
  - DYSPNOEA EXERTIONAL [None]
  - GASTRITIS EROSIVE [None]
  - ATRIAL FLUTTER [None]
  - CARDIAC ABLATION [None]
  - SYNCOPE [None]
